FAERS Safety Report 8588188-2 (Version None)
Quarter: 2012Q3

REPORT INFORMATION
  Report Type: 
  Country: None (occurrence: None)
  Receive Date: 20120731
  Receipt Date: 20120717
  Transmission Date: 20120928
  Serious: Yes (Other)
  Sender: FDA-Public Use
  Company Number: 2012P1050052

PATIENT
  Age: 59 Year
  Sex: Female
  Weight: 101.1521 kg

DRUGS (18)
  1. NEOSTIGMINE METHYLSULFATE INJECTION 1MG/ML 10 ML VIAL (NO PREF. NAME) [Suspect]
     Indication: NEUROMUSCULAR BLOCKADE REVERSAL
     Dosage: 3 MG;X1 1 MG;X1
  2. FLUOXETINE HCL [Concomitant]
  3. VERSED [Concomitant]
  4. PROPOFOL [Concomitant]
  5. LIPITOR [Concomitant]
  6. ROBINUL [Concomitant]
  7. OMEPRAZOLE [Concomitant]
  8. VECURONIUM BROMIDE INJECTION (SUN PHARMACEUTICALS) (NO PREF. NAME) [Suspect]
     Indication: MUSCLE RELAXANT THERAPY
     Dosage: 10 MG
  9. VECURONIUM BROMIDE INJECTION (SUN PHARMACEUTICALS) (NO PREF. NAME) [Suspect]
     Indication: HERNIA REPAIR
     Dosage: 10 MG
  10. AMITRIPTYLINE HCL [Concomitant]
  11. BACLOFEN [Concomitant]
  12. SAVELLA [Concomitant]
  13. TORADOL [Concomitant]
  14. METFORMIN HCL [Concomitant]
  15. VESICARE [Concomitant]
  16. SEVOFLURANE [Concomitant]
  17. FENTANYL [Concomitant]
  18. NARCAN [Concomitant]

REACTIONS (3)
  - COUGH [None]
  - PRODUCT QUALITY ISSUE [None]
  - MUSCULAR WEAKNESS [None]
